FAERS Safety Report 7893207-2 (Version None)
Quarter: 2011Q4

REPORT INFORMATION
  Report Type: 
  Country: None (occurrence: None)
  Receive Date: 20111104
  Receipt Date: 20111028
  Transmission Date: 20120403
  Serious: Yes (Other)
  Sender: FDA-Public Use
  Company Number: PHHY2011BR96480

PATIENT
  Sex: Male

DRUGS (8)
  1. EXELON [Suspect]
     Dosage: 9MG/5CM2, UNK
     Route: 062
  2. DIOVAN [Suspect]
     Dosage: 160 MG, UNK
  3. DIOVAN [Suspect]
     Dosage: 320 MG, UNK
  4. DIOVAN [Suspect]
     Dosage: 160 MG, UNK
  5. DIOVAN [Suspect]
     Dosage: 80 MG, UNK
  6. DIOVAN HCT [Suspect]
     Dosage: 1 DF (160 MG VALS AND 12.5 MG HCT), UNK
  7. CATAFLAM [Suspect]
     Dosage: 60 G, UNK
  8. DIOVAN HCT [Suspect]
     Dosage: 1 DF (320 MG VALS AND 12.5 MG HCT)), UNK

REACTIONS (1)
  - DEAFNESS [None]
